FAERS Safety Report 25674614 (Version 1)
Quarter: 2025Q3

REPORT INFORMATION
  Report Type: Spontaneous
  Country: EU (occurrence: EU)
  Receive Date: 20250813
  Receipt Date: 20250813
  Transmission Date: 20251021
  Serious: Yes (Hospitalization)
  Sender: RANBAXY
  Company Number: EU-SUN PHARMACEUTICAL INDUSTRIES LTD-2025RR-522504

PATIENT
  Age: 47 Year
  Sex: Female
  Weight: 53.5 kg

DRUGS (3)
  1. ACETAMINOPHEN [Suspect]
     Active Substance: ACETAMINOPHEN
     Indication: Poisoning deliberate
     Route: 048
     Dates: start: 20250322, end: 20250322
  2. IBUPROFEN [Suspect]
     Active Substance: IBUPROFEN
     Indication: Poisoning deliberate
     Route: 048
     Dates: start: 20250322, end: 20250322
  3. CODEINE [Suspect]
     Active Substance: CODEINE
     Indication: Poisoning deliberate
     Route: 048
     Dates: start: 20250322, end: 20250322

REACTIONS (3)
  - Poisoning deliberate [Recovered/Resolved]
  - Prothrombin time ratio decreased [Recovered/Resolved]
  - Vomiting [Recovered/Resolved]

NARRATIVE: CASE EVENT DATE: 20250322
